FAERS Safety Report 5596399-3 (Version None)
Quarter: 2008Q1

REPORT INFORMATION
  Report Type: 
  Country: None (occurrence: None)
  Receive Date: 20080118
  Receipt Date: 20080111
  Transmission Date: 20080703
  Serious: Yes (Other)
  Sender: FDA-Public Use
  Company Number: US-PFIZER INC-2006035618

PATIENT
  Sex: Female
  Weight: 90.7 kg

DRUGS (8)
  1. ZYRTEC [Suspect]
     Indication: SEASONAL ALLERGY
  2. ZYRTEC-D 12 HOUR [Suspect]
     Indication: SEASONAL ALLERGY
  3. LYRICA [Suspect]
     Indication: PAIN
     Route: 048
  4. LYRICA [Suspect]
     Indication: ARTHRALGIA
  5. OMEGA 3 [Concomitant]
     Route: 065
  6. ADVIL LIQUI-GELS [Concomitant]
     Route: 065
  7. CENTRUM SILVER [Concomitant]
     Route: 065
  8. WELLBUTRIN [Concomitant]

REACTIONS (6)
  - BENIGN SALIVARY GLAND NEOPLASM [None]
  - DRY MOUTH [None]
  - INSOMNIA [None]
  - NASAL DRYNESS [None]
  - SOMNOLENCE [None]
  - WHEEZING [None]
